FAERS Safety Report 23112094 (Version 2)
Quarter: 2023Q4

REPORT INFORMATION
  Report Type: Spontaneous
  Country: JP (occurrence: JP)
  Receive Date: 20231026
  Receipt Date: 20231122
  Transmission Date: 20240109
  Serious: Yes (Other)
  Sender: FDA-Public Use
  Company Number: JP-Eisai-202308430_LEN-RCC_P_1

PATIENT
  Sex: Male

DRUGS (4)
  1. LENVIMA [Suspect]
     Active Substance: LENVATINIB
     Indication: Renal cell carcinoma
     Route: 048
     Dates: start: 20230703, end: 20230904
  2. LENVIMA [Suspect]
     Active Substance: LENVATINIB
     Route: 048
  3. KEYTRUDA [Suspect]
     Active Substance: PEMBROLIZUMAB
     Indication: Renal cell carcinoma
     Route: 041
     Dates: start: 20230703, end: 20230904
  4. LEVOTHYROXINE [Concomitant]
     Active Substance: LEVOTHYROXINE
     Indication: Hypothyroidism
     Route: 065

REACTIONS (2)
  - Adrenal insufficiency [Recovering/Resolving]
  - Hypothyroidism [Recovered/Resolved]

NARRATIVE: CASE EVENT DATE: 20230904
